FAERS Safety Report 5235338-1 (Version None)
Quarter: 2007Q1

REPORT INFORMATION
  Report Type: 
  Country: None (occurrence: None)
  Receive Date: 20070212
  Receipt Date: 20070206
  Transmission Date: 20070707
  Serious: Yes (Hospitalization)
  Sender: FDA-Public Use
  Company Number: ES-BAYER-200710833GDS

PATIENT
  Age: 75 Year
  Sex: Female

DRUGS (6)
  1. ASPIRIN [Suspect]
     Indication: PROPHYLAXIS
     Route: 048
  2. KETESSE [Suspect]
     Indication: CELLULITIS
     Dosage: TOTAL DAILY DOSE: 75 MG  UNIT DOSE: 25 MG
     Route: 048
     Dates: start: 20060415, end: 20060424
  3. PLAVIX [Suspect]
     Indication: PROPHYLAXIS
     Dosage: UNIT DOSE: 75 MG
     Route: 048
  4. ENEAS [Suspect]
     Indication: ESSENTIAL HYPERTENSION
     Route: 048
     Dates: end: 20060424
  5. VOLTAREN [Suspect]
     Indication: PAIN
     Route: 048
  6. AUGMENTINE 500/125 MG (AMOXICILLIN TRIHYDRATE/CLAVULA NATE POTASSIUM) [Concomitant]
     Indication: CELLULITIS
     Route: 048
     Dates: start: 20060415, end: 20060424

REACTIONS (1)
  - RENAL FAILURE ACUTE [None]
